FAERS Safety Report 14552303 (Version 1)
Quarter: 2018Q1

REPORT INFORMATION
  Report Type: Spontaneous
  Country: US (occurrence: US)
  Receive Date: 20180220
  Receipt Date: 20180220
  Transmission Date: 20180509
  Serious: Yes (Death, Other)
  Sender: FDA-Public Use
  Company Number: US-AUROBINDO-AUR-APL-2018-005893

PATIENT
  Age: 27 Year
  Sex: Male

DRUGS (4)
  1. ABACAVIR. [Suspect]
     Active Substance: ABACAVIR
     Indication: KAPOSI^S SARCOMA
     Route: 065
  2. RITONAVIR. [Suspect]
     Active Substance: RITONAVIR
     Indication: KAPOSI^S SARCOMA
     Route: 065
  3. LAMIVUDINE. [Suspect]
     Active Substance: LAMIVUDINE
     Indication: KAPOSI^S SARCOMA
     Route: 065
  4. DARUNAVIR [Suspect]
     Active Substance: DARUNAVIR
     Indication: KAPOSI^S SARCOMA
     Route: 065

REACTIONS (3)
  - Respiratory failure [Unknown]
  - Immune reconstitution inflammatory syndrome [Unknown]
  - Coccidioidomycosis [Fatal]
